FAERS Safety Report 5588220-4 (Version None)
Quarter: 2008Q1

REPORT INFORMATION
  Report Type: 
  Country: None (occurrence: None)
  Receive Date: 20080108
  Receipt Date: 20071224
  Transmission Date: 20080703
  Serious: Yes (Other)
  Sender: FDA-Public Use
  Company Number: 2007S1013715

PATIENT

DRUGS (3)
  1. TERBINAFINE HYDROCHLORIDE [Suspect]
     Indication: ONYCHOMYCOSIS
     Dosage: 250 MG; ; ORAL
     Route: 048
     Dates: start: 20070615, end: 20071012
  2. CO-CODAMOL [Concomitant]
  3. DICLOFENAC [Concomitant]

REACTIONS (1)
  - DYSTONIA [None]
